FAERS Safety Report 5133676-4 (Version None)
Quarter: 2006Q4

REPORT INFORMATION
  Report Type: 
  Country: None (occurrence: None)
  Receive Date: 20061024
  Receipt Date: 20060927
  Transmission Date: 20070319
  Serious: Yes (Other)
  Sender: FDA-Public Use
  Company Number: DE-ROCHE-465339

PATIENT
  Age: 70 Year
  Sex: Male
  Weight: 60 kg

DRUGS (5)
  1. BONIVA [Suspect]
     Indication: OSTEOPOROSIS
     Dosage: STRENGTH REPORTED AS 3 MG/3 ML
     Route: 042
     Dates: start: 20060720
  2. MARCUMAR [Concomitant]
     Route: 048
  3. TROMCARDIN FORTE [Concomitant]
  4. THYRONAJOD [Concomitant]
  5. CONCOR [Concomitant]

REACTIONS (4)
  - ARTHRALGIA [None]
  - ATRIAL FIBRILLATION [None]
  - CHILLS [None]
  - MYALGIA [None]
